FAERS Safety Report 23045570 (Version 2)
Quarter: 2023Q4

REPORT INFORMATION
  Report Type: Spontaneous
  Country: GB (occurrence: GB)
  Receive Date: 20231009
  Receipt Date: 20231120
  Transmission Date: 20240110
  Serious: Yes (Other)
  Sender: FDA-Public Use
  Company Number: GB-OTSUKA-2023_025951

PATIENT
  Age: 39 Year
  Sex: Male

DRUGS (3)
  1. ABILIFY MAINTENA [Suspect]
     Active Substance: ARIPIPRAZOLE
     Indication: Schizophrenia
     Dosage: UNK
     Route: 065
  2. ABILIFY MAINTENA [Suspect]
     Active Substance: ARIPIPRAZOLE
     Dosage: UNK
     Route: 065
     Dates: start: 202209
  3. ABILIFY MAINTENA [Suspect]
     Active Substance: ARIPIPRAZOLE
     Dosage: QM (ONCE A MONTH)
     Route: 065
     Dates: start: 202211, end: 202309

REACTIONS (11)
  - Hallucination [Unknown]
  - Suicidal ideation [Recovered/Resolved]
  - Syncope [Unknown]
  - Intrusive thoughts [Unknown]
  - Hypoacusis [Recovered/Resolved]
  - Dysphonia [Unknown]
  - Psychotic disorder [Unknown]
  - Depressed mood [Recovering/Resolving]
  - Asthenia [Recovering/Resolving]
  - Fatigue [Recovering/Resolving]
  - Somnolence [Recovering/Resolving]
